FAERS Safety Report 15766768 (Version 1)
Quarter: 2018Q4

REPORT INFORMATION
  Report Type: Report from Study
  Country: US (occurrence: US)
  Receive Date: 20181227
  Receipt Date: 20181227
  Transmission Date: 20190205
  Serious: Yes (Hospitalization)
  Sender: FDA-Public Use
  Company Number: US-TEVA-2018-US-992738

PATIENT
  Age: 16 Year
  Sex: Female

DRUGS (1)
  1. BUPROPION. [Suspect]
     Active Substance: BUPROPION
     Dosage: PRESCRIBED DOSE WAS 300MG
     Route: 048

REACTIONS (4)
  - Hyperreflexia [Unknown]
  - Tremor [Unknown]
  - Accidental overdose [Unknown]
  - Seizure [Recovered/Resolved]
